FAERS Safety Report 13187905 (Version 1)
Quarter: 2017Q1

REPORT INFORMATION
  Report Type: Report from Study
  Country: GB (occurrence: GB)
  Receive Date: 20170206
  Receipt Date: 20170206
  Transmission Date: 20170428
  Serious: Yes (Hospitalization)
  Sender: FDA-Public Use
  Company Number: PHFR2017GB000822

PATIENT
  Sex: Female
  Weight: 142.8 kg

DRUGS (1)
  1. COSENTYX [Suspect]
     Active Substance: SECUKINUMAB
     Indication: PRODUCT USED FOR UNKNOWN INDICATION
     Dosage: 150 MG, UNK
     Route: 065

REACTIONS (4)
  - Rash erythematous [Unknown]
  - Psoriasis [Unknown]
  - Menorrhagia [Unknown]
  - Drug hypersensitivity [Unknown]
